FAERS Safety Report 25774337 (Version 1)
Quarter: 2025Q3

REPORT INFORMATION
  Report Type: Spontaneous
  Country: US (occurrence: US)
  Receive Date: 20250908
  Receipt Date: 20250908
  Transmission Date: 20251020
  Serious: No
  Sender: MISSION PHARMACAL COMPANY
  Company Number: US-Mission Pharmacal Company-2184069

PATIENT

DRUGS (1)
  1. THIOLA [Suspect]
     Active Substance: TIOPRONIN

REACTIONS (3)
  - Systemic lupus erythematosus [Unknown]
  - Pyrexia [Unknown]
  - Arthritis [Unknown]

NARRATIVE: CASE EVENT DATE: 20241101
